FAERS Safety Report 24814195 (Version 1)
Quarter: 2025Q1

REPORT INFORMATION
  Report Type: Spontaneous
  Country: US (occurrence: US)
  Receive Date: 20250107
  Receipt Date: 20250107
  Transmission Date: 20250408
  Serious: Yes (Other)
  Sender: ALEMBIC
  Company Number: US-ALEMBIC PHARMACUETICALS LIMITED-2024SCAL001920

PATIENT

DRUGS (1)
  1. TESTOSTERONE [Suspect]
     Active Substance: TESTOSTERONE
     Indication: Androgen deficiency
     Route: 065

REACTIONS (9)
  - Hepatocellular carcinoma [Unknown]
  - Tumour rupture [Unknown]
  - Hepatic adenoma [Unknown]
  - Abdominal pain upper [Unknown]
  - Vomiting [Unknown]
  - Polycythaemia [Unknown]
  - Aspartate aminotransferase increased [Unknown]
  - Alanine aminotransferase increased [Unknown]
  - Hepatic haemorrhage [Unknown]
